FAERS Safety Report 10557608 (Version 3)
Quarter: 2014Q4

REPORT INFORMATION
  Report Type: Report from Study
  Country: ES (occurrence: ES)
  Receive Date: 20141031
  Receipt Date: 20141212
  Transmission Date: 20150529
  Serious: Yes (Life-Threatening, Other)
  Sender: FDA-Public Use
  Company Number: ES-BAYER-2014-160696

PATIENT
  Age: 84 Year
  Sex: Male
  Weight: 70 kg

DRUGS (8)
  1. REGORAFENIB [Suspect]
     Active Substance: REGORAFENIB
     Indication: COLORECTAL CANCER METASTATIC
     Dosage: 120 MG, QD
     Route: 048
     Dates: start: 20140718, end: 20141027
  2. SINTROM [Concomitant]
     Active Substance: ACENOCOUMAROL
     Indication: HYPERTENSION
     Dosage: 1.5 MG, QD
     Route: 048
  3. PRAVASTATIN [Concomitant]
     Active Substance: PRAVASTATIN\PRAVASTATIN SODIUM
     Indication: BLOOD CHOLESTEROL INCREASED
     Dosage: 20 MG, QD
     Route: 048
     Dates: start: 201306
  4. SINTROM [Concomitant]
     Active Substance: ACENOCOUMAROL
     Indication: ANTICOAGULANT THERAPY
  5. PHOSPHATE [POTASSIUM BICARBONATE,SODIUM PHOSPHATE MONOBASIC] [Concomitant]
     Indication: PROPHYLAXIS
     Dosage: 500 MG/DAY
     Route: 048
     Dates: start: 20140814, end: 20141027
  6. METFORMINE [Concomitant]
     Active Substance: METFORMIN HYDROCHLORIDE
     Indication: DIABETES MELLITUS
     Dosage: BQ
     Dates: start: 1993
  7. ATENOLOL. [Concomitant]
     Active Substance: ATENOLOL
     Indication: HYPERTENSION
     Dosage: UNK
     Route: 048
     Dates: start: 201306
  8. DIAMICRON [Concomitant]
     Active Substance: GLICLAZIDE
     Indication: DIABETES MELLITUS
     Dosage: 60 MG, QD
     Route: 048
     Dates: start: 1993

REACTIONS (2)
  - Hypertension [Recovered/Resolved]
  - Transient ischaemic attack [Recovered/Resolved]

NARRATIVE: CASE EVENT DATE: 20141020
